FAERS Safety Report 7669417-6 (Version None)
Quarter: 2011Q3

REPORT INFORMATION
  Report Type: 
  Country: None (occurrence: None)
  Receive Date: 20110808
  Receipt Date: 20110802
  Transmission Date: 20111222
  Serious: Yes (Death)
  Sender: FDA-Public Use
  Company Number: CO-ROCHE-794764

PATIENT
  Sex: Male

DRUGS (1)
  1. MYCOPHENOLATE MOFETIL [Suspect]
     Dosage: FREQUENCY: QD, DRUG: CELLCEPT
     Route: 048
     Dates: start: 20081031

REACTIONS (1)
  - CONVULSION [None]
